FAERS Safety Report 5194167-8 (Version None)
Quarter: 2006Q4

REPORT INFORMATION
  Report Type: 
  Country: None (occurrence: None)
  Receive Date: 20061226
  Receipt Date: 20061212
  Transmission Date: 20070319
  Serious: Yes (Other)
  Sender: FDA-Public Use
  Company Number: CIP06002275

PATIENT
  Age: 86 Year
  Sex: Male
  Weight: 66.7 kg

DRUGS (7)
  1. ACTONEL [Suspect]
     Indication: OSTEOPOROSIS
     Dosage: 35 MG ONCE WEEKLY, ORAL
     Route: 048
     Dates: start: 20020101, end: 20060901
  2. LISINOPRIL [Concomitant]
  3. OTHER OPHTHALMOLOGICALS [Concomitant]
  4. FORTICAL /00371903/ (CALCITONIN, SALMON) SPRAY [Concomitant]
  5. CALCIUM +VIT D (CALCIUM, COLECALCIFEROL) [Concomitant]
  6. GLUCOSAMINE W/CHONDROITIN (GLUCOSAMINE, CHONDROITIN SULFATE) [Concomitant]
  7. ANDROGEL [Concomitant]

REACTIONS (5)
  - BLOOD TESTOSTERONE INCREASED [None]
  - FALL [None]
  - RENAL FAILURE CHRONIC [None]
  - RENAL IMPAIRMENT [None]
  - SPINAL FRACTURE [None]
